FAERS Safety Report 6502733-X (Version None)
Quarter: 2009Q4

REPORT INFORMATION
  Report Type: 
  Country: None (occurrence: None)
  Receive Date: 20091217
  Receipt Date: 20091208
  Transmission Date: 20100525
  Serious: Yes (Other)
  Sender: FDA-Public Use
  Company Number: JP-ASTRAZENECA-2009SE26177

PATIENT
  Age: 71 Year
  Sex: Female
  Weight: 48 kg

DRUGS (5)
  1. MARCAINE [Suspect]
     Indication: LOCAL ANAESTHESIA
     Route: 065
     Dates: start: 20091106, end: 20091106
  2. FENTANYL [Concomitant]
     Indication: ANALGESIC THERAPY
     Route: 042
     Dates: start: 20091106, end: 20091106
  3. ROPION [Concomitant]
     Indication: ANALGESIC THERAPY
     Route: 042
     Dates: start: 20091106, end: 20091106
  4. SEVOFLURANE [Concomitant]
     Indication: GENERAL ANAESTHESIA
     Route: 055
     Dates: start: 20091106, end: 20091106
  5. ULTIVA [Concomitant]
     Indication: GENERAL ANAESTHESIA
     Route: 042
     Dates: start: 20091106, end: 20091106

REACTIONS (2)
  - ARRHYTHMIA SUPRAVENTRICULAR [None]
  - CONVULSION [None]
